FAERS Safety Report 8776924 (Version 2)
Quarter: 2012Q4

REPORT INFORMATION
  Report Type: 
  Country: AU (occurrence: AU)
  Receive Date: 20120911
  Receipt Date: 20120911
  Transmission Date: 20130627
  Serious: Yes (Life-Threatening, Other)
  Sender: FDA-Public Use
  Company Number: AU-JNJFOC-20110802469

PATIENT
  Age: 75 Year
  Sex: Female

DRUGS (9)
  1. JURNISTA [Suspect]
     Indication: BACK PAIN
     Route: 048
  2. JURNISTA [Suspect]
     Indication: BACK PAIN
     Route: 048
     Dates: start: 20110407, end: 20120421
  3. DUROGESIC [Suspect]
     Indication: BACK PAIN
     Route: 062
  4. ATENOLOL [Concomitant]
     Route: 065
  5. MICARDIS [Concomitant]
     Route: 065
  6. NEXIUM [Concomitant]
     Route: 065
  7. NORVASC [Concomitant]
     Route: 065
  8. PANADOL OSTEO [Concomitant]
     Route: 065
  9. ZOLOFT [Concomitant]
     Route: 065

REACTIONS (1)
  - Hepatic enzyme increased [Recovered/Resolved]
